FAERS Safety Report 10272770 (Version 1)
Quarter: 2014Q3

REPORT INFORMATION
  Report Type: Spontaneous
  Country: FR (occurrence: FR)
  Receive Date: 20140702
  Receipt Date: 20140702
  Transmission Date: 20150326
  Serious: Yes (Hospitalization)
  Sender: FDA-Public Use
  Company Number: FR-ROCHE-1427157

PATIENT
  Age: 68 Year
  Sex: Female

DRUGS (6)
  1. DUPHALAC [Concomitant]
     Active Substance: LACTULOSE
     Route: 065
  2. XATRAL [Concomitant]
     Active Substance: ALFUZOSIN
     Route: 065
  3. CELLCEPT [Suspect]
     Active Substance: MYCOPHENOLATE MOFETIL\MYCOPHENOLATE MOFETIL HYDROCHLORIDE
     Indication: MULTIPLE SCLEROSIS
     Route: 065
     Dates: start: 200902
  4. FAMPYRA [Suspect]
     Active Substance: DALFAMPRIDINE
     Indication: MULTIPLE SCLEROSIS
     Route: 048
     Dates: start: 20140404, end: 20140503
  5. EUPANTOL [Concomitant]
     Active Substance: PANTOPRAZOLE SODIUM
     Route: 065
  6. CERIS [Concomitant]
     Active Substance: TROSPIUM CHLORIDE
     Route: 065

REACTIONS (4)
  - Hyperkalaemia [Unknown]
  - Hypercalcaemia [Unknown]
  - Hepatocellular injury [Unknown]
  - Bicytopenia [Unknown]

NARRATIVE: CASE EVENT DATE: 20140514
